FAERS Safety Report 16821857 (Version 1)
Quarter: 2019Q3

REPORT INFORMATION
  Report Type: Spontaneous
  Country: US (occurrence: US)
  Receive Date: 20190726
  Receipt Date: 20190726
  Transmission Date: 20191005
  Serious: Yes (Hospitalization)
  Sender: FDA-Public Use
  Company Number: None

PATIENT
  Age: 18 Year
  Sex: Male

DRUGS (4)
  1. VALGANCICLOV TAB [Concomitant]
  2. HUMULIN INJ [Concomitant]
  3. PULMOZYME [Suspect]
     Active Substance: DORNASE ALFA
     Indication: CYSTIC FIBROSIS
     Dates: start: 20170218
  4. FREESTYLE KIT STARTER [Concomitant]

REACTIONS (1)
  - Liver transplant [None]

NARRATIVE: CASE EVENT DATE: 20190522
